FAERS Safety Report 23751508 (Version 3)
Quarter: 2024Q2

REPORT INFORMATION
  Report Type: Spontaneous
  Country: US (occurrence: None)
  Receive Date: 20240417
  Receipt Date: 20240430
  Transmission Date: 20240715
  Serious: Yes (Other)
  Sender: FDA-Public Use
  Company Number: 2024A089599

PATIENT
  Age: 24439 Day
  Sex: Female

DRUGS (2)
  1. BREZTRI [Suspect]
     Active Substance: BUDESONIDE\FORMOTEROL\GLYCOPYRROLATE
     Indication: Chronic obstructive pulmonary disease
     Dosage: 160/9/4.8MCG UNKNOWN
     Route: 055
  2. AIRSUPRA [Concomitant]
     Active Substance: ALBUTEROL SULFATE\BUDESONIDE

REACTIONS (11)
  - Joint dislocation [Unknown]
  - Fall [Unknown]
  - Decreased activity [Unknown]
  - Taste disorder [Unknown]
  - Malaise [Unknown]
  - Discomfort [Unknown]
  - Asthenia [Unknown]
  - Cough [Unknown]
  - Device use issue [Unknown]
  - Device malfunction [Unknown]
  - Device dispensing error [Unknown]

NARRATIVE: CASE EVENT DATE: 20240412
